FAERS Safety Report 22009662 (Version 1)
Quarter: 2023Q1

REPORT INFORMATION
  Report Type: Spontaneous
  Country: NL (occurrence: NL)
  Receive Date: 20230220
  Receipt Date: 20230220
  Transmission Date: 20230418
  Serious: Yes (Other)
  Sender: FDA-Public Use
  Company Number: NL-SA-SAC20230216001124

PATIENT
  Sex: Female

DRUGS (2)
  1. SUTIMLIMAB-JOME [Suspect]
     Active Substance: SUTIMLIMAB-JOME
     Dosage: 1 DF, QOW
     Route: 065
  2. SUTIMLIMAB-JOME [Suspect]
     Active Substance: SUTIMLIMAB-JOME
     Dosage: 1 DF Q3W
     Route: 065

REACTIONS (4)
  - Cold type haemolytic anaemia [Unknown]
  - Condition aggravated [Unknown]
  - Blood immunoglobulin M increased [Unknown]
  - Inappropriate schedule of product administration [Unknown]
